FAERS Safety Report 7956535-8 (Version None)
Quarter: 2011Q4

REPORT INFORMATION
  Report Type: 
  Country: None (occurrence: None)
  Receive Date: 20111205
  Receipt Date: 20111124
  Transmission Date: 20120403
  Serious: Yes (Hospitalization)
  Sender: FDA-Public Use
  Company Number: FR-JNJFOC-20111111538

PATIENT
  Sex: Female

DRUGS (5)
  1. ZYRTEC [Suspect]
     Route: 065
  2. AMOXICILLIN [Suspect]
     Indication: TOOTH EXTRACTION
     Route: 048
     Dates: start: 20111104, end: 20111105
  3. WYSTAMM [Suspect]
     Indication: HYPERSENSITIVITY
     Route: 048
     Dates: start: 20111105, end: 20111110
  4. ZYRTEC [Suspect]
     Indication: HYPERSENSITIVITY
     Route: 065
     Dates: start: 20111110, end: 20111111
  5. CORTICOSTEROIDS [Suspect]
     Indication: HYPERSENSITIVITY
     Route: 051
     Dates: start: 20111110, end: 20111110

REACTIONS (1)
  - OEDEMA [None]
